FAERS Safety Report 9882700 (Version 1)
Quarter: 2014Q1

REPORT INFORMATION
  Report Type: Spontaneous
  Country: US (occurrence: US)
  Receive Date: 20140207
  Receipt Date: 20140207
  Transmission Date: 20141002
  Serious: Yes (Hospitalization, Other)
  Sender: FDA-Public Use
  Company Number: PHHY2014US013596

PATIENT
  Age: 23 Year
  Sex: Female

DRUGS (4)
  1. HYDROCHLOROTHIAZIDE [Suspect]
  2. MAGNESIUM [Suspect]
     Route: 042
  3. LABETALOL [Suspect]
  4. NIFEDIPINE [Suspect]

REACTIONS (24)
  - Systemic lupus erythematosus [Unknown]
  - Dyspnoea [Recovered/Resolved]
  - Fatigue [Unknown]
  - Hypophagia [Unknown]
  - Petechiae [Unknown]
  - Breath sounds abnormal [Unknown]
  - Red blood cell sedimentation rate increased [Unknown]
  - Pleural effusion [Unknown]
  - Pericardial effusion [Unknown]
  - Vasculitic rash [Recovered/Resolved]
  - Rheumatoid arthritis [Unknown]
  - Thrombocytopenia [Recovered/Resolved]
  - Serositis [Unknown]
  - Oedema [Unknown]
  - Haemoglobin decreased [Recovered/Resolved]
  - Renal failure acute [Recovering/Resolving]
  - Haematuria [Unknown]
  - Blood creatine increased [Unknown]
  - Pre-eclampsia [Unknown]
  - Blood pressure systolic increased [Recovered/Resolved]
  - Proteinuria [Unknown]
  - Premature labour [Unknown]
  - Maternal exposure during pregnancy [Unknown]
  - Drug ineffective [Unknown]
